FAERS Safety Report 13289967 (Version 3)
Quarter: 2017Q2

REPORT INFORMATION
  Report Type: Spontaneous
  Country: US (occurrence: US)
  Receive Date: 20170302
  Receipt Date: 20170418
  Transmission Date: 20170830
  Serious: Yes (Hospitalization, Other)
  Sender: FDA-Public Use
  Company Number: US-GLAXOSMITHKLINE-US2017GSK029116

PATIENT
  Sex: Male

DRUGS (7)
  1. INSPRA [Suspect]
     Active Substance: EPLERENONE
     Indication: CARDIAC FAILURE CONGESTIVE
     Dosage: 50 MG, QD
     Route: 048
  2. COREG [Suspect]
     Active Substance: CARVEDILOL
     Indication: CARDIAC FAILURE CONGESTIVE
     Dosage: 6.25 MG, QD
     Route: 048
  3. COREG [Suspect]
     Active Substance: CARVEDILOL
     Dosage: 6.25 MG, BID
     Route: 048
  4. ASPIRIN. [Concomitant]
     Active Substance: ASPIRIN
     Dosage: 81 MG, QD
  5. INSPRA [Suspect]
     Active Substance: EPLERENONE
     Indication: BLOOD PRESSURE ABNORMAL
     Dosage: 50 MG, BID
     Route: 048
  6. CARVEDILOL. [Suspect]
     Active Substance: CARVEDILOL
     Indication: PRODUCT USED FOR UNKNOWN INDICATION
  7. COREG [Suspect]
     Active Substance: CARVEDILOL
     Dosage: 0.5 DF, QD

REACTIONS (8)
  - Cardiac failure congestive [Unknown]
  - Abdominal discomfort [Unknown]
  - Product substitution issue [Unknown]
  - Headache [Unknown]
  - Adverse reaction [Unknown]
  - Drug interaction [Unknown]
  - Cardiac operation [Unknown]
  - Dizziness [Recovered/Resolved]

NARRATIVE: CASE EVENT DATE: 2005
